FAERS Safety Report 4725836-9 (Version None)
Quarter: 2005Q3

REPORT INFORMATION
  Report Type: 
  Country: None (occurrence: None)
  Receive Date: 20050722
  Receipt Date: 20050722
  Transmission Date: 20060218
  Serious: Yes (Life-Threatening, Hospitalization)
  Sender: FDA-Public Use
  Company Number: None

PATIENT
  Age: 28 Year
  Sex: Male
  Weight: 77.1115 kg

DRUGS (1)
  1. BACTRIM DS [Suspect]
     Indication: PROSTATITIS
     Dosage: 1 PO BID
     Route: 048

REACTIONS (1)
  - MENINGITIS [None]
